FAERS Safety Report 7284142-1 (Version None)
Quarter: 2011Q1

REPORT INFORMATION
  Report Type: 
  Country: None (occurrence: None)
  Receive Date: 20110131
  Receipt Date: 20110110
  Transmission Date: 20110831
  Serious: Yes (Other)
  Sender: FDA-Public Use
  Company Number: CTI_01243_2010

PATIENT
  Age: 46 Year
  Sex: Female
  Weight: 115.6 kg

DRUGS (17)
  1. THEOPHYLLINE [Suspect]
     Indication: ASTHMA
     Dosage: (600 MG, 200MG IN AM AND 400MG IN PME ORAL)
     Route: 048
  2. PERCOCET [Concomitant]
  3. CALCIUM WITH VITAMIN D [Concomitant]
  4. RELPAX [Concomitant]
  5. MULTI-VITAMINS [Concomitant]
  6. MAXAIR [Suspect]
     Indication: ASTHMA
     Dosage: (1 DF BID)
  7. XYZAL [Concomitant]
  8. TOPAMAX [Concomitant]
  9. B12 VITAMIN [Concomitant]
  10. ZILEUTON 600 MG [Suspect]
     Indication: ASTHMA
     Dosage: (1200 MG BID ORAL)
     Route: 048
  11. NEXIUM [Concomitant]
  12. SAVELLA [Suspect]
     Indication: FIBROMYALGIA
     Dosage: SEE IMAGE
     Route: 048
     Dates: start: 20100601, end: 20100601
  13. SAVELLA [Suspect]
     Indication: FIBROMYALGIA
     Dosage: SEE IMAGE
     Route: 048
     Dates: start: 20100701, end: 20100801
  14. SAVELLA [Suspect]
     Indication: FIBROMYALGIA
     Dosage: SEE IMAGE
     Route: 048
     Dates: start: 20100801, end: 20100914
  15. ADVAIR HFA [Suspect]
     Indication: ASTHMA
     Dosage: (2DF BID)
  16. PULMICORT [Suspect]
     Indication: ASTHMA
     Dosage: (180 ?G BID)
  17. RHINOCORT [Concomitant]

REACTIONS (4)
  - OVERDOSE [None]
  - SINUSITIS [None]
  - CATARACT [None]
  - BLOOD PRESSURE INCREASED [None]
